FAERS Safety Report 5951949-X (Version None)
Quarter: 2008Q4

REPORT INFORMATION
  Report Type: 
  Country: None (occurrence: None)
  Receive Date: 20081113
  Receipt Date: 20070926
  Transmission Date: 20090506
  Serious: No
  Sender: FDA-Public Use
  Company Number: A0684359A

PATIENT
  Age: 72 Year
  Sex: Male

DRUGS (11)
  1. COREG [Suspect]
     Dosage: 25MG TWICE PER DAY
     Route: 048
     Dates: end: 20070701
  2. PRINIVIL [Concomitant]
  3. BUFFERIN [Concomitant]
  4. MULTI-VITAMIN [Concomitant]
  5. FUROSEMIDE [Concomitant]
  6. COUMADIN [Concomitant]
  7. CARDIZEM [Concomitant]
  8. ZOCOR [Concomitant]
  9. SYNTHROID [Concomitant]
  10. ALLOPURINOL [Concomitant]
  11. ZETIA [Concomitant]

REACTIONS (2)
  - DISORIENTATION [None]
  - DIZZINESS [None]
